FAERS Safety Report 8482730-8 (Version None)
Quarter: 2012Q3

REPORT INFORMATION
  Report Type: 
  Country: None (occurrence: None)
  Receive Date: 20120702
  Receipt Date: 20120628
  Transmission Date: 20120928
  Serious: No
  Sender: FDA-Public Use
  Company Number: US-PFIZER INC-2012156162

PATIENT
  Sex: Female

DRUGS (3)
  1. ZOLOFT [Suspect]
     Indication: DEPRESSION
     Dosage: 50 MG, 1X/DAY
     Route: 048
     Dates: start: 20120222, end: 20120530
  2. ZOLOFT [Suspect]
     Dosage: 25MG TABLET INTO HALF, 1X/DAY
     Route: 048
     Dates: start: 20120531, end: 20120601
  3. ZOLOFT [Suspect]
     Dosage: 25 MG, 1X/DAY
     Route: 048
     Dates: start: 20120601

REACTIONS (2)
  - DRUG INTOLERANCE [None]
  - DIZZINESS [None]
